FAERS Safety Report 6696511-9 (Version None)
Quarter: 2010Q2

REPORT INFORMATION
  Report Type: 
  Country: None (occurrence: None)
  Receive Date: 20100426
  Receipt Date: 20100415
  Transmission Date: 20101027
  Serious: Yes (Other)
  Sender: FDA-Public Use
  Company Number: US-JNJFOC-20100404688

PATIENT
  Sex: Female
  Weight: 115.67 kg

DRUGS (15)
  1. DURAGESIC-100 [Suspect]
     Indication: PAIN
     Route: 062
  2. FENTANYL CITRATE [Suspect]
     Indication: PAIN
     Dosage: 2 PATCHES OF 75UG/HR
     Route: 062
  3. FENTANYL CITRATE [Suspect]
     Dosage: 2 PATCHES OF 75UG/HR
     Route: 062
  4. RELAFEN [Suspect]
     Indication: DRUG USE FOR UNKNOWN INDICATION
     Route: 048
  5. ATENOLOL [Concomitant]
     Indication: SENSATION OF PRESSURE
     Dosage: ONCE IN MORNING
     Route: 048
  6. LISINOPRIL [Concomitant]
     Indication: BLOOD PRESSURE
     Dosage: 20MG TWO IN MORNING
     Route: 048
  7. PRILOSEC [Concomitant]
     Indication: GASTROOESOPHAGEAL REFLUX DISEASE
     Route: 048
  8. LEVOTHROID [Concomitant]
     Indication: HYPOTHYROIDISM
     Route: 048
  9. GLIPIZIDE [Concomitant]
     Indication: DIABETES MELLITUS
     Dosage: 5MG IN MORNING AND 2.5MG IN EVENING
     Route: 048
  10. OXYBUTIN [Concomitant]
     Indication: DRUG USE FOR UNKNOWN INDICATION
     Route: 048
  11. FUROSEMIDE [Concomitant]
     Indication: FLUID RETENTION
     Dosage: 40MG IN MORNING AND 20MG IN EVENING
     Route: 048
  12. NORVASC [Concomitant]
     Indication: BLOOD PRESSURE
     Route: 048
  13. ROBAXIN [Concomitant]
     Indication: MUSCLE SPASMS
     Route: 048
  14. ZOMETA [Concomitant]
     Indication: OSTEOPOROSIS
     Route: 065
  15. ALLOPURINOL [Concomitant]
     Indication: GOUT
     Dosage: ONCE IN EVENING
     Route: 048

REACTIONS (4)
  - PRODUCT ADHESION ISSUE [None]
  - RENAL FAILURE [None]
  - WITHDRAWAL SYNDROME [None]
  - WRONG TECHNIQUE IN DRUG USAGE PROCESS [None]
